FAERS Safety Report 24703832 (Version 3)
Quarter: 2025Q2

REPORT INFORMATION
  Report Type: Spontaneous
  Country: JM (occurrence: JM)
  Receive Date: 20241206
  Receipt Date: 20250430
  Transmission Date: 20250717
  Serious: Yes (Death, Hospitalization, Other)
  Sender: NOVARTIS
  Company Number: JM-002147023-NVSC2024JM232454

PATIENT
  Age: 70 Year
  Sex: Male

DRUGS (17)
  1. GLIVEC [Suspect]
     Active Substance: IMATINIB MESYLATE
     Indication: Gastrointestinal stromal tumour
     Dosage: 400 MG, QD
     Route: 048
     Dates: start: 20220822
  2. GLIVEC [Suspect]
     Active Substance: IMATINIB MESYLATE
     Dosage: 200 MG, QD
     Route: 048
     Dates: start: 20231211
  3. GLIVEC [Suspect]
     Active Substance: IMATINIB MESYLATE
     Dosage: 400 MG, QD
     Route: 048
     Dates: start: 202403
  4. GLIVEC [Suspect]
     Active Substance: IMATINIB MESYLATE
     Dosage: 600 MG  (1X400 MG + 2X100 MG)
     Route: 048
     Dates: start: 202406, end: 202408
  5. GLIVEC [Suspect]
     Active Substance: IMATINIB MESYLATE
     Route: 065
  6. ZOLEDRONIC ACID [Suspect]
     Active Substance: ZOLEDRONIC ACID
     Indication: Product used for unknown indication
     Dosage: UNK, QMO
     Route: 065
     Dates: end: 202407
  7. METAMIZOLE SODIUM [Concomitant]
     Active Substance: METAMIZOLE SODIUM
     Indication: Abdominal pain
     Route: 065
  8. METAMIZOLE SODIUM [Concomitant]
     Active Substance: METAMIZOLE SODIUM
     Route: 065
     Dates: start: 20220322, end: 20240820
  9. Cetadine [Concomitant]
     Indication: Abdominal pain
     Route: 065
  10. Cetadine [Concomitant]
     Route: 065
     Dates: start: 20240824, end: 20240828
  11. FINASTERIDE [Concomitant]
     Active Substance: FINASTERIDE
     Indication: Product used for unknown indication
     Dosage: 5 MG, QD
     Route: 048
  12. FINASTERIDE [Concomitant]
     Active Substance: FINASTERIDE
     Dosage: 5 MG, QD, NOCTE
     Route: 048
     Dates: start: 20220322, end: 20240828
  13. FOLATE SODIUM [Concomitant]
     Active Substance: FOLATE SODIUM
     Indication: Product used for unknown indication
     Dosage: 5 MG, QD
     Route: 048
  14. FOLATE SODIUM [Concomitant]
     Active Substance: FOLATE SODIUM
     Dosage: 5 MG, QD
     Route: 048
     Dates: start: 20220322, end: 20240909
  15. MEROPENEM [Concomitant]
     Active Substance: MEROPENEM
     Indication: Product used for unknown indication
     Route: 065
     Dates: start: 20241009
  16. Levofed [Concomitant]
     Indication: Product used for unknown indication
     Route: 065
  17. PANADOL [Concomitant]
     Active Substance: ACETAMINOPHEN
     Indication: Product used for unknown indication
     Dosage: 1 G, QD
     Route: 048

REACTIONS (26)
  - Pulmonary embolism [Fatal]
  - Deep vein thrombosis [Fatal]
  - Cardiac failure acute [Fatal]
  - Septic shock [Fatal]
  - Urinary tract infection [Recovered/Resolved]
  - Dysuria [Recovered/Resolved]
  - Urine odour abnormal [Recovered/Resolved]
  - Pyrexia [Recovered/Resolved]
  - Dyspnoea [Unknown]
  - Peripheral swelling [Unknown]
  - Renal impairment [Unknown]
  - Gastrointestinal stromal tumour [Unknown]
  - Malignant neoplasm progression [Unknown]
  - Acute respiratory distress syndrome [Unknown]
  - Upper gastrointestinal haemorrhage [Unknown]
  - Urosepsis [Unknown]
  - Acute kidney injury [Unknown]
  - Diabetic neuropathy [Unknown]
  - Leukocytosis [Unknown]
  - Nausea [Unknown]
  - Vomiting [Unknown]
  - Asthenia [Unknown]
  - Oedema peripheral [Unknown]
  - Hypotension [Unknown]
  - Dyspepsia [Unknown]
  - Anaemia [Unknown]

NARRATIVE: CASE EVENT DATE: 20220519
